FAERS Safety Report 4988308-2 (Version None)
Quarter: 2006Q2

REPORT INFORMATION
  Report Type: 
  Country: None (occurrence: None)
  Receive Date: 20060425
  Receipt Date: 20051020
  Transmission Date: 20061013
  Serious: Yes (Hospitalization)
  Sender: FDA-Public Use
  Company Number: 8013015

PATIENT
  Age: 39 Year
  Sex: Male

DRUGS (4)
  1. KEPPRA [Suspect]
     Dosage: 600 MG 2/D PO
     Route: 048
  2. KEPPRA [Suspect]
     Dosage: 1800 MG ONCE PO
     Route: 048
     Dates: start: 20051020, end: 20051020
  3. LAMICTAL [Suspect]
     Dosage: 300 MG 2/D PO
     Route: 048
  4. LAMICTAL [Suspect]
     Dosage: 900 MG ONCE PO
     Route: 048
     Dates: start: 20051020, end: 20051020

REACTIONS (3)
  - ACCIDENTAL EXPOSURE [None]
  - INCORRECT DOSE ADMINISTERED [None]
  - NAUSEA [None]
